FAERS Safety Report 7489913-4 (Version None)
Quarter: 2011Q2

REPORT INFORMATION
  Report Type: 
  Country: None (occurrence: None)
  Receive Date: 20110517
  Receipt Date: 20110517
  Transmission Date: 20111010
  Serious: Yes (Other)
  Sender: FDA-Public Use
  Company Number: None

PATIENT
  Sex: Female
  Weight: 90.7194 kg

DRUGS (2)
  1. HEAD AND SHOULDERS [Suspect]
  2. HEAD AND SHOULDERS [Suspect]
     Indication: HAIR DISORDER
     Dates: start: 20110201, end: 20110301

REACTIONS (1)
  - ALOPECIA [None]
